FAERS Safety Report 13350520 (Version 2)
Quarter: 2017Q1

REPORT INFORMATION
  Report Type: Report from Study
  Country: CH (occurrence: CH)
  Receive Date: 20170320
  Receipt Date: 20170324
  Transmission Date: 20170429
  Serious: Yes (Other)
  Sender: FDA-Public Use
  Company Number: CH-JNJFOC-20170317940

PATIENT
  Age: 25 Year
  Sex: Female
  Weight: 83 kg

DRUGS (6)
  1. ECOFENAC [Concomitant]
     Active Substance: DICLOFENAC SODIUM
     Route: 065
  2. METHOTREXATE. [Concomitant]
     Active Substance: METHOTREXATE
     Route: 058
     Dates: start: 20141229
  3. REMICADE [Suspect]
     Active Substance: INFLIXIMAB
     Indication: ANKYLOSING SPONDYLITIS
     Route: 042
     Dates: start: 201004, end: 201111
  4. REMICADE [Suspect]
     Active Substance: INFLIXIMAB
     Indication: ANKYLOSING SPONDYLITIS
     Route: 042
     Dates: start: 20170216
  5. REMICADE [Suspect]
     Active Substance: INFLIXIMAB
     Indication: ANKYLOSING SPONDYLITIS
     Route: 042
     Dates: start: 20170303, end: 20170303
  6. PARACETOMOL [Concomitant]
     Active Substance: ACETAMINOPHEN
     Route: 065

REACTIONS (7)
  - Hypotension [Recovered/Resolved]
  - Vomiting [Recovering/Resolving]
  - Tachycardia [Recovered/Resolved]
  - Bradycardia [Recovering/Resolving]
  - Infusion related reaction [Recovering/Resolving]
  - Chest pain [Recovered/Resolved]
  - Myalgia [Recovered/Resolved]

NARRATIVE: CASE EVENT DATE: 20170303
